FAERS Safety Report 17548084 (Version 1)
Quarter: 2020Q1

REPORT INFORMATION
  Report Type: Spontaneous
  Country: US (occurrence: US)
  Receive Date: 20200317
  Receipt Date: 20200317
  Transmission Date: 20200409
  Serious: Yes (Other)
  Sender: FDA-Public Use
  Company Number: US-SPECGX-T202000559

PATIENT
  Sex: Female

DRUGS (1)
  1. OXYCODONE [Suspect]
     Active Substance: OXYCODONE
     Indication: PAIN
     Dosage: UNK
     Route: 065

REACTIONS (8)
  - Vocal cord thickening [Unknown]
  - Ankle fracture [Unknown]
  - Arthralgia [Unknown]
  - Joint injury [Unknown]
  - Fall [Unknown]
  - Depression [Unknown]
  - Knee arthroplasty [Unknown]
  - Drug ineffective [Unknown]
